FAERS Safety Report 9892832 (Version 2)
Quarter: 2014Q1

REPORT INFORMATION
  Report Type: Spontaneous
  Country: US (occurrence: US)
  Receive Date: 20140213
  Receipt Date: 20140309
  Transmission Date: 20141002
  Serious: Yes (Other)
  Sender: FDA-Public Use
  Company Number: US-009507513-1402USA004568

PATIENT
  Sex: 0

DRUGS (5)
  1. TEMOZOLOMIDE [Suspect]
     Indication: CENTRAL NERVOUS SYSTEM LYMPHOMA
     Dosage: UNK
     Route: 048
  2. RITUXIMAB [Concomitant]
     Dosage: GIVEN FOR THE FIRST CYCLE, CYCLICAL
  3. METHOTREXATE [Concomitant]
     Dosage: GIVEN FOR 5 CYCYES, CYCLICAL
  4. VINCRISTINE SULFATE [Concomitant]
     Dosage: GIVEN FOR 5 CYCYES, CYCLICAL
  5. PROCARBAZINE [Concomitant]
     Dosage: GIVEN FOR 5 CYCYES, CYCLICAL

REACTIONS (2)
  - Renal failure acute [Unknown]
  - Thrombocytopenia [Unknown]
